FAERS Safety Report 8533639 (Version 5)
Quarter: 2012Q4

REPORT INFORMATION
  Report Type: 
  Country: JP (occurrence: JP)
  Receive Date: 20120427
  Receipt Date: 20120924
  Transmission Date: 20130627
  Serious: Yes (Hospitalization, Other)
  Sender: FDA-Public Use
  Company Number: PHHY2012JP035460

PATIENT
  Age: 69 Year
  Sex: Female

DRUGS (6)
  1. DIOVAN [Suspect]
     Indication: HYPERTENSION
     Dosage: 40 mg, daily
     Route: 048
     Dates: start: 201101
  2. DIOVAN [Suspect]
     Dosage: 40 mg, daily (half of an 80 mg tablet)
     Route: 048
     Dates: start: 20110629, end: 20120518
  3. STEROID [Concomitant]
  4. DEPAS [Concomitant]
     Dosage: 1 mg, UNK
     Route: 048
     Dates: start: 201107
  5. SYMBICORT [Concomitant]
     Dosage: 4 DF, UNK
     Dates: start: 201107
  6. ADOAIR [Concomitant]
     Dates: end: 20110724

REACTIONS (3)
  - Asthma [Unknown]
  - Pancytopenia [Unknown]
  - Wrong technique in drug usage process [Unknown]
